FAERS Safety Report 16566827 (Version 2)
Quarter: 2019Q3

REPORT INFORMATION
  Report Type: Spontaneous
  Country: CZ (occurrence: CZ)
  Receive Date: 20190712
  Receipt Date: 20190829
  Transmission Date: 20191004
  Serious: Yes (Life-Threatening, Hospitalization, Other)
  Sender: FDA-Public Use
  Company Number: CZ-MYLANLABS-2019M1064998

PATIENT
  Age: 60 Year
  Sex: Female

DRUGS (10)
  1. OXALIPLATIN. [Suspect]
     Active Substance: OXALIPLATIN
     Indication: HEPATIC CANCER
     Dosage: 8 SERIES OF FOLFOX CHEMOTHERAPY
     Route: 042
  2. GEMCITABINE. [Suspect]
     Active Substance: GEMCITABINE
     Dosage: 3 SERIES OF CHEMOTHERAPY CBDCA / GEMCITABINE
     Route: 042
  3. CARBOPLATIN. [Suspect]
     Active Substance: CARBOPLATIN
     Indication: CHOLANGIOCARCINOMA
     Dosage: UNK UNK, CYCLE
     Dates: start: 201611, end: 201703
  4. CARBOPLATIN. [Suspect]
     Active Substance: CARBOPLATIN
     Dosage: UNK
     Route: 042
  5. CISPLATIN. [Suspect]
     Active Substance: CISPLATIN
     Indication: CHOLANGIOCARCINOMA
     Dosage: UNK, CYCLE
     Dates: start: 201411
  6. CAPECITABINE. [Suspect]
     Active Substance: CAPECITABINE
     Indication: CHOLANGIOCARCINOMA
     Dosage: UNK
     Dates: start: 201802
  7. OXALIPLATIN. [Suspect]
     Active Substance: OXALIPLATIN
     Indication: CHOLANGIOCARCINOMA
     Dosage: UNK, CYCLE
     Dates: start: 201708, end: 201801
  8. GEMCITABINE. [Suspect]
     Active Substance: GEMCITABINE
     Indication: CHOLANGIOCARCINOMA
     Dosage: 1 UNK, CYCLE
     Dates: start: 201410
  9. FOLINIC ACID [Suspect]
     Active Substance: LEUCOVORIN
     Indication: CHOLANGIOCARCINOMA
     Dosage: 8 SERIES OF FOLFOX CHEMOTHERAPY
     Route: 042
     Dates: start: 201708
  10. FLUOROURACIL. [Suspect]
     Active Substance: FLUOROURACIL
     Indication: CHOLANGIOCARCINOMA
     Dosage: UNK UNK, CYCLE
     Dates: start: 201708, end: 201801

REACTIONS (11)
  - Malignant neoplasm progression [Recovering/Resolving]
  - Neurotoxicity [Unknown]
  - Anaemia [Recovered/Resolved]
  - Cholangiocarcinoma [Recovering/Resolving]
  - Neutropenia [Unknown]
  - Renal failure [Unknown]
  - Thrombocytopenia [Recovered/Resolved]
  - Haematotoxicity [Recovered/Resolved]
  - Paraesthesia [Recovered/Resolved]
  - Product use in unapproved indication [Unknown]
  - Oral candidiasis [Unknown]

NARRATIVE: CASE EVENT DATE: 201505
